FAERS Safety Report 8233466-X (Version None)
Quarter: 2012Q1

REPORT INFORMATION
  Report Type: 
  Country: None (occurrence: None)
  Receive Date: 20120326
  Receipt Date: 20120314
  Transmission Date: 20120608
  Serious: No
  Sender: FDA-Public Use
  Company Number: US-JNJFOC-20120308800

PATIENT
  Sex: Male

DRUGS (7)
  1. CYMBALTA [Concomitant]
     Indication: DEPRESSION
     Route: 049
  2. FENTANYL-100 [Suspect]
     Route: 062
     Dates: start: 20110101, end: 20110101
  3. LOSARTAN POTASSIUM [Concomitant]
     Indication: BLOOD PRESSURE
     Route: 048
  4. FENTANYL-100 [Suspect]
     Route: 062
     Dates: start: 20110101
  5. CYMBALTA [Concomitant]
     Indication: PAIN
     Route: 049
  6. FENTANYL-100 [Suspect]
     Indication: PAIN
     Route: 062
     Dates: start: 20120101
  7. OXYCODONE HCL [Concomitant]
     Indication: PAIN
     Dosage: 4-6 HOURS AS NEEDED
     Route: 048

REACTIONS (3)
  - THERAPEUTIC RESPONSE DECREASED [None]
  - WRONG TECHNIQUE IN DRUG USAGE PROCESS [None]
  - PRODUCT QUALITY ISSUE [None]
